FAERS Safety Report 12812931 (Version 1)
Quarter: 2016Q4

REPORT INFORMATION
  Report Type: Report from Study
  Country: US (occurrence: US)
  Receive Date: 20161005
  Receipt Date: 20161005
  Transmission Date: 20170207
  Serious: Yes (Hospitalization)
  Sender: FDA-Public Use
  Company Number: US-ACTELION-A-US2016-130072

PATIENT
  Age: 54 Year
  Sex: Female

DRUGS (3)
  1. REVATIO [Concomitant]
     Active Substance: SILDENAFIL CITRATE
  2. OPSUMIT [Suspect]
     Active Substance: MACITENTAN
     Indication: PULMONARY ARTERIAL HYPERTENSION
     Dosage: 10 MG, QD
     Route: 048
     Dates: start: 20140625
  3. DILTIAZEM. [Concomitant]
     Active Substance: DILTIAZEM

REACTIONS (6)
  - Dyspnoea [Unknown]
  - Hypopnoea [Unknown]
  - Respiratory tract congestion [Unknown]
  - Medical device site joint infection [Unknown]
  - Drug dose omission [Unknown]
  - Patella fracture [Unknown]

NARRATIVE: CASE EVENT DATE: 20160102
